FAERS Safety Report 11568728 (Version 1)
Quarter: 2015Q3

REPORT INFORMATION
  Report Type: Spontaneous
  Country: US (occurrence: US)
  Receive Date: 20150929
  Receipt Date: 20150929
  Transmission Date: 20151125
  Serious: Yes (Hospitalization, Other)
  Sender: FDA-Public Use
  Company Number: US-ALEMBIC PHARMACUETICALS LIMITED-2015SCAL000653

PATIENT
  Age: 51 Year
  Sex: Male
  Weight: 100 kg

DRUGS (2)
  1. AMLODIPINE [Suspect]
     Active Substance: AMLODIPINE BESYLATE
     Indication: PRODUCT USED FOR UNKNOWN INDICATION
     Dosage: 40 DF, UNK
  2. METOPROLOL TARTRATE. [Suspect]
     Active Substance: METOPROLOL TARTRATE
     Indication: PRODUCT USED FOR UNKNOWN INDICATION
     Dosage: 40 DF, UNK

REACTIONS (6)
  - Nodal arrhythmia [Unknown]
  - Blood pressure decreased [Recovering/Resolving]
  - Overdose [Unknown]
  - Suicide attempt [Unknown]
  - Somnolence [Unknown]
  - Vomiting [Unknown]
